FAERS Safety Report 7927849-2 (Version None)
Quarter: 2011Q4

REPORT INFORMATION
  Report Type: 
  Country: None (occurrence: None)
  Receive Date: 20111118
  Receipt Date: 20111118
  Transmission Date: 20120403
  Serious: No
  Sender: FDA-Public Use
  Company Number: None

PATIENT
  Age: 50 Year
  Sex: Male
  Weight: 90.718 kg

DRUGS (1)
  1. STAXYN [Suspect]
     Indication: ERECTILE DYSFUNCTION
     Dosage: 10 MG
     Route: 048
     Dates: start: 20111015, end: 20111015

REACTIONS (3)
  - PHOTOPSIA [None]
  - EYE PAIN [None]
  - NASAL CONGESTION [None]
